FAERS Safety Report 4994835-4 (Version None)
Quarter: 2006Q2

REPORT INFORMATION
  Report Type: 
  Country: None (occurrence: None)
  Receive Date: 20060508
  Receipt Date: 20060425
  Transmission Date: 20061013
  Serious: Yes (Other)
  Sender: FDA-Public Use
  Company Number: PHBS2006FR06368

PATIENT
  Age: 26 Year
  Sex: Female

DRUGS (3)
  1. CARBAMAZEPINE [Suspect]
     Indication: EPILEPSY
     Dosage: 1600 MG/DAY
     Route: 065
  2. PHENOBARBITAL TAB [Suspect]
     Indication: EPILEPSY
     Dosage: 100 MG/DAY
     Route: 065
  3. PHENYTOIN [Suspect]
     Indication: EPILEPSY
     Dosage: 200 MG/DAY
     Route: 065

REACTIONS (6)
  - CONDITION AGGRAVATED [None]
  - ELECTROENCEPHALOGRAM ABNORMAL [None]
  - GRAND MAL CONVULSION [None]
  - MYOCLONIC EPILEPSY [None]
  - MYOCLONUS [None]
  - STATUS EPILEPTICUS [None]
